FAERS Safety Report 15295264 (Version 1)
Quarter: 2018Q3

REPORT INFORMATION
  Report Type: Spontaneous
  Country: US (occurrence: US)
  Receive Date: 20180820
  Receipt Date: 20180820
  Transmission Date: 20181010
  Serious: No
  Sender: FDA-Public Use
  Company Number: US-GLAXOSMITHKLINE-US2018143971

PATIENT
  Sex: Female

DRUGS (1)
  1. NICODERM CQ [Suspect]
     Active Substance: NICOTINE
     Indication: SMOKING CESSATION THERAPY
     Dosage: 14 MG, UNK

REACTIONS (9)
  - Anxiety [Unknown]
  - Nervousness [Unknown]
  - Overdose [Unknown]
  - Feeding disorder [Unknown]
  - Feeling abnormal [Unknown]
  - Panic attack [Unknown]
  - Weight decreased [Unknown]
  - Agitation [Unknown]
  - Amnesia [Unknown]
